FAERS Safety Report 17219554 (Version 4)
Quarter: 2021Q2

REPORT INFORMATION
  Report Type: Spontaneous
  Country: US (occurrence: US)
  Receive Date: 20191231
  Receipt Date: 20210623
  Transmission Date: 20210716
  Serious: Yes (Hospitalization)
  Sender: FDA-Public Use
  Company Number: US-PFIZER INC-2019561609

PATIENT
  Age: 79 Year
  Sex: Female

DRUGS (1)
  1. XELJANZ [Suspect]
     Active Substance: TOFACITINIB CITRATE
     Dosage: 5 MG, UNK

REACTIONS (6)
  - Aphonia [Unknown]
  - Dysgraphia [Unknown]
  - Product dose omission issue [Unknown]
  - Illness [Unknown]
  - Pain [Unknown]
  - Pain in extremity [Unknown]
